FAERS Safety Report 7243124-6 (Version None)
Quarter: 2011Q1

REPORT INFORMATION
  Report Type: 
  Country: None (occurrence: None)
  Receive Date: 20110125
  Receipt Date: 20110119
  Transmission Date: 20110831
  Serious: Yes (Hospitalization)
  Sender: FDA-Public Use
  Company Number: JP-PFIZER INC-2010180678

PATIENT
  Age: 73 Year
  Sex: Male

DRUGS (14)
  1. LYRICA [Suspect]
     Indication: SCIATICA
     Dosage: 150 MG DAILY
     Route: 048
     Dates: start: 20101222, end: 20101222
  2. SOLETON [Concomitant]
     Indication: PAIN IN EXTREMITY
  3. COMESGEN [Concomitant]
     Indication: PAIN IN EXTREMITY
  4. SOLETON [Concomitant]
     Indication: CHONDROSIS
  5. NEUROTROPIN [Concomitant]
     Indication: SPINAL OSTEOARTHRITIS
     Dosage: 3 ML, 1X/DAY
     Route: 042
     Dates: start: 20101208
  6. NEUROTROPIN [Concomitant]
     Indication: CHONDROSIS
  7. METHYCOBAL [Concomitant]
     Indication: CHONDROSIS
  8. METHYCOBAL [Concomitant]
     Indication: SPINAL OSTEOARTHRITIS
     Dosage: 500 UG, 1X/DAY
     Route: 042
     Dates: start: 20101208
  9. SOLETON [Concomitant]
     Indication: HYPOAESTHESIA
     Dosage: 1 UNK, 3X/DAY
     Route: 048
     Dates: start: 20101208
  10. MUCOSTA [Concomitant]
     Indication: GASTRITIS
     Dosage: 1 UNK, 3X/DAY
     Route: 048
     Dates: start: 20101208
  11. COMESGEN [Concomitant]
     Indication: SPINAL OSTEOARTHRITIS
  12. SOLETON [Concomitant]
     Indication: SPINAL OSTEOARTHRITIS
  13. COMESGEN [Concomitant]
     Indication: HYPOAESTHESIA
     Dosage: 1 UNK, 3X/DAY
     Dates: start: 20101208
  14. COMESGEN [Concomitant]
     Indication: CHONDROSIS

REACTIONS (1)
  - OROPHARYNGEAL PAIN [None]
